FAERS Safety Report 8625487-X (Version None)
Quarter: 2012Q3

REPORT INFORMATION
  Report Type: 
  Country: None (occurrence: None)
  Receive Date: 20120827
  Receipt Date: 20120824
  Transmission Date: 20120928
  Serious: Yes (Other)
  Sender: FDA-Public Use
  Company Number: FR-BAYER-2012-087518

PATIENT
  Age: 13 Year
  Sex: Male

DRUGS (3)
  1. ANTIHEMOPHILIC FACTOR (HUMAN) [Suspect]
     Indication: FACTOR VIII DEFICIENCY
     Dosage: ON-DEMAND TREATMENT
     Route: 042
  2. ANTIHEMOPHILIC FACTOR (HUMAN) [Suspect]
     Indication: FACTOR VIII DEFICIENCY
     Dosage: 100 IU/KG, QD
     Route: 042
  3. ANTIHEMOPHILIC FACTOR (HUMAN) [Suspect]
     Indication: HAEMORRHAGE

REACTIONS (4)
  - MUSCLE DISORDER [None]
  - HAEMARTHROSIS [None]
  - ANTI FACTOR VIII ANTIBODY POSITIVE [None]
  - MUSCLE HAEMORRHAGE [None]
